FAERS Safety Report 8770165 (Version 1)
Quarter: 2012Q4

REPORT INFORMATION
  Report Type: 
  Country: US (occurrence: US)
  Receive Date: 20120831
  Receipt Date: 20120831
  Transmission Date: 20130627
  Serious: Yes (Other)
  Sender: FDA-Public Use
  Company Number: US-ELI_LILLY_AND_COMPANY-US201208008641

PATIENT
  Age: 82 Year
  Sex: Female

DRUGS (4)
  1. FORTEO [Suspect]
     Indication: OSTEOPOROSIS
     Dosage: 20 u, qd
     Dates: start: 200910, end: 201208
  2. PLAVIX [Concomitant]
     Dosage: UNK
  3. LOSARTAN + HIDROCLOROTIAZIDA [Concomitant]
     Dosage: UNK
  4. VITAMINS WITH MINERALS [Concomitant]
     Dosage: UNK

REACTIONS (11)
  - Breast cancer in situ [Unknown]
  - Fall [Unknown]
  - Spinal fracture [Unknown]
  - Cerebrovascular accident [Unknown]
  - Musculoskeletal chest pain [Unknown]
  - Feeling abnormal [Unknown]
  - Fall [Unknown]
  - Upper limb fracture [Unknown]
  - Musculoskeletal chest pain [Unknown]
  - Hypertension [Unknown]
  - Bone density decreased [Unknown]
